FAERS Safety Report 25015165 (Version 2)
Quarter: 2025Q3

REPORT INFORMATION
  Report Type: Spontaneous
  Country: US (occurrence: US)
  Receive Date: 20250226
  Receipt Date: 20250806
  Transmission Date: 20251021
  Serious: No
  Sender: BIOMARIN
  Company Number: US-BIOMARINAP-US-2025-164055

PATIENT
  Age: 28 Year
  Sex: Female

DRUGS (4)
  1. PALYNZIQ [Suspect]
     Active Substance: PEGVALIASE-PQPZ
     Indication: Phenylketonuria
     Dosage: 20 MILLIGRAM, QD
  2. PALYNZIQ [Suspect]
     Active Substance: PEGVALIASE-PQPZ
  3. PALYNZIQ [Suspect]
     Active Substance: PEGVALIASE-PQPZ
     Dosage: 10 MILLIGRAM, QD
  4. PALYNZIQ [Suspect]
     Active Substance: PEGVALIASE-PQPZ
     Dosage: 10 MILLIGRAM, QOD

REACTIONS (1)
  - Arthralgia [Unknown]
